FAERS Safety Report 22369783 (Version 5)
Quarter: 2024Q1

REPORT INFORMATION
  Report Type: Spontaneous
  Country: US (occurrence: US)
  Receive Date: 20230526
  Receipt Date: 20240116
  Transmission Date: 20240409
  Serious: Yes (Other)
  Sender: FDA-Public Use
  Company Number: US-UCBSA-2023005718

PATIENT
  Sex: Female
  Weight: 95.25 kg

DRUGS (25)
  1. CIMZIA [Suspect]
     Active Substance: CERTOLIZUMAB PEGOL
     Indication: Ankylosing spondylitis
     Dosage: 400 MILLIGRAM, MONTHLY (QM)
     Route: 058
     Dates: start: 20220215
  2. CIMZIA [Suspect]
     Active Substance: CERTOLIZUMAB PEGOL
     Dosage: 200 MILLIGRAM
     Route: 058
     Dates: start: 20220414
  3. CIMZIA [Suspect]
     Active Substance: CERTOLIZUMAB PEGOL
     Dosage: 400 MILLIGRAM, OTHER
     Route: 058
  4. CIMZIA [Suspect]
     Active Substance: CERTOLIZUMAB PEGOL
     Dosage: 200 MILLIGRAM, PRN
     Route: 058
  5. CIMZIA [Suspect]
     Active Substance: CERTOLIZUMAB PEGOL
     Dosage: 400 MILLIGRAM, EV 2 WEEKS(QOW)
     Route: 058
     Dates: start: 202204
  6. CIMZIA [Suspect]
     Active Substance: CERTOLIZUMAB PEGOL
     Dosage: 400 MILLIGRAM, MONTHLY (QM)
     Route: 058
     Dates: end: 20230917
  7. CIMZIA [Suspect]
     Active Substance: CERTOLIZUMAB PEGOL
     Dosage: 400 MILLIGRAM, EV 4 WEEKS
     Route: 058
  8. ADDERALL [Concomitant]
     Active Substance: AMPHETAMINE ASPARTATE\AMPHETAMINE SULFATE\DEXTROAMPHETAMINE SACCHARATE\DEXTROAMPHETAMINE SULFATE
     Indication: Attention deficit hyperactivity disorder
     Dosage: 5 MILLIGRAM, EV 3 WEEKS
     Route: 048
     Dates: start: 20230801
  9. ADDERALL [Concomitant]
     Active Substance: AMPHETAMINE ASPARTATE\AMPHETAMINE SULFATE\DEXTROAMPHETAMINE SACCHARATE\DEXTROAMPHETAMINE SULFATE
     Dosage: 5 MILLIGRAM, WEEKLY (QW)
     Route: 048
     Dates: start: 20230115, end: 20230731
  10. CAFFEINE [Concomitant]
     Active Substance: CAFFEINE
     Indication: Caffeine consumption
     Dosage: 100 MILLIGRAM, ONCE DAILY (QD)
     Route: 048
     Dates: start: 20221221
  11. INFLUENZA VIRUS VACCINE [Concomitant]
     Active Substance: INFLUENZA VIRUS VACCINE
     Indication: Immunisation
     Dosage: 1 DOSAGE FORM
     Route: 030
     Dates: start: 20221001, end: 20221031
  12. LETROZOLE [Concomitant]
     Active Substance: LETROZOLE
     Indication: Infertility
     Dosage: 7.5 MILLIGRAM, ONCE DAILY (QD)
     Route: 048
     Dates: start: 20221226, end: 20221230
  13. MELOXICAM [Concomitant]
     Active Substance: MELOXICAM
     Indication: Ankylosing spondylitis
     Dosage: UNK
     Dates: start: 20211215, end: 20220215
  14. OVIDREL [Concomitant]
     Active Substance: CHORIOGONADOTROPIN ALFA
     Indication: Infertility
     Dosage: 1 DOSAGE FORM, ONCE DAILY (QD)
     Route: 058
     Dates: start: 20230102, end: 20230102
  15. DIBROMPROPAMIDINE ISETHIONATE\PROMETHAZINE HYDROCHLORIDE [Concomitant]
     Active Substance: DIBROMPROPAMIDINE ISETHIONATE\PROMETHAZINE HYDROCHLORIDE
     Indication: Nausea
     Dosage: 12.5 MILLIGRAM, EV 3 DAYS
     Route: 048
     Dates: start: 20230115, end: 20230614
  16. PREDNISONE [Concomitant]
     Active Substance: PREDNISONE
     Indication: Ankylosing spondylitis
     Dosage: UNK
     Dates: start: 20211215, end: 20220215
  17. PROCARDIA [Concomitant]
     Active Substance: NIFEDIPINE
     Indication: Premature delivery
     Dosage: 20 MILLIGRAM, EV 4 DAYS
     Route: 048
     Dates: start: 20230718
  18. PROGESTERONE [Concomitant]
     Active Substance: PROGESTERONE
     Indication: Infertility
     Dosage: 200 MILLIGRAM, EV 2 DAYS (QOD)
     Route: 061
     Dates: start: 20230105
  19. PROMETRIUM [Concomitant]
     Active Substance: PROGESTERONE
     Indication: Pregnancy
     Dosage: 400 MILLIGRAM, ONCE DAILY (QD)
     Route: 048
     Dates: start: 20221221
  20. ZOFRAN [Concomitant]
     Active Substance: ONDANSETRON HYDROCHLORIDE
     Indication: Nausea
     Dosage: 4 MILLIGRAM, EV 2 DAYS (QOD)
     Route: 048
     Dates: start: 20230115, end: 20230614
  21. MINERALS\VITAMINS [Concomitant]
     Active Substance: MINERALS\VITAMINS
     Indication: Pregnancy
     Dosage: 1 DOSAGE FORM, ONCE DAILY (QD)
     Route: 048
     Dates: start: 20221221, end: 20230206
  22. MINERALS\VITAMINS [Concomitant]
     Active Substance: MINERALS\VITAMINS
     Dosage: 2 DOSAGE FORM, ONCE DAILY (QD)
     Route: 048
     Dates: start: 20230207
  23. ZOLOFT [Concomitant]
     Active Substance: SERTRALINE HYDROCHLORIDE
     Indication: Depression
     Dosage: 100 MILLIGRAM, PER 1 DAY
     Route: 048
     Dates: start: 20230201, end: 20230913
  24. BUSPIRONE HCL [Concomitant]
     Active Substance: BUSPIRONE HYDROCHLORIDE
     Indication: Anxiety
     Dosage: 7.5 MILLIGRAM, 2 PER DAY
     Route: 048
     Dates: start: 20230201, end: 20230913
  25. TETANUS TOXOID, REDUCED DIPHTHERIA TOXOID AND ACELLULAR PERTUSSIS VACC [Concomitant]
     Active Substance: TETANUS TOXOID, REDUCED DIPHTHERIA TOXOID AND ACELLULAR PERTUSSIS VACCINE ADSORBED, TDAP
     Indication: Product used for unknown indication
     Dosage: 1 SHOT, 1 TOTL
     Route: 030
     Dates: start: 20230901, end: 20230907

REACTIONS (12)
  - Abortion spontaneous [Unknown]
  - Ankylosing spondylitis [Unknown]
  - Nasopharyngitis [Recovered/Resolved]
  - Cough [Unknown]
  - Sneezing [Unknown]
  - Injection site bruising [Recovered/Resolved]
  - Injection site swelling [Recovered/Resolved]
  - Maternal exposure before pregnancy [Unknown]
  - Maternal exposure during pregnancy [Unknown]
  - Product dose omission in error [Unknown]
  - Off label use [Unknown]
  - Twin pregnancy [Unknown]

NARRATIVE: CASE EVENT DATE: 20220101
